FAERS Safety Report 8676657 (Version 3)
Quarter: 2013Q3

REPORT INFORMATION
  Report Type: Spontaneous
  Country: US (occurrence: US)
  Receive Date: 20120723
  Receipt Date: 20130730
  Transmission Date: 20140515
  Serious: Yes (Hospitalization)
  Sender: FDA-Public Use
  Company Number: US-BIOGENIDEC-2012BI025733

PATIENT
  Sex: Female

DRUGS (1)
  1. TYSABRI [Suspect]
     Indication: MULTIPLE SCLEROSIS
     Route: 042
     Dates: start: 20110310

REACTIONS (4)
  - Cervical spinal stenosis [Recovered/Resolved]
  - Neck pain [Recovered/Resolved]
  - Surgical failure [Recovered/Resolved]
  - Muscle spasms [Recovered/Resolved]
